FAERS Safety Report 7763356-8 (Version None)
Quarter: 2011Q3

REPORT INFORMATION
  Report Type: 
  Country: None (occurrence: None)
  Receive Date: 20110920
  Receipt Date: 20110912
  Transmission Date: 20111222
  Serious: Yes (Life-Threatening, Hospitalization)
  Sender: FDA-Public Use
  Company Number: DK-TEVA-300223ISR

PATIENT
  Sex: Female
  Weight: 47 kg

DRUGS (3)
  1. MEMANTINE HYDROCHLORIDE [Interacting]
     Indication: DEMENTIA ALZHEIMER'S TYPE
     Dosage: 10 MILLIGRAM(S)
     Route: 048
     Dates: start: 20031218
  2. METHOTREXATE [Suspect]
     Indication: PSORIASIS
     Dosage: 2.5 MILLIGRAM(S)
     Route: 048
     Dates: start: 20050202
  3. 28101849296 PERSANTIN RETARD 200 MG DEPOTKAPSLER, H?RDE [Concomitant]
     Indication: ACUTE MYOCARDIAL INFARCTION
     Dosage: 200 MILLIGRAM(S)
     Route: 048
     Dates: start: 20031218

REACTIONS (4)
  - THROMBOCYTOPENIA [None]
  - DRUG INTERACTION [None]
  - LEUKOPENIA [None]
  - GRANULOCYTOPENIA [None]
